FAERS Safety Report 9996298 (Version 2)
Quarter: 2014Q1

REPORT INFORMATION
  Report Type: Spontaneous
  Country: JP (occurrence: JP)
  Receive Date: 20140311
  Receipt Date: 20140311
  Transmission Date: 20141002
  Serious: No
  Sender: FDA-Public Use
  Company Number: JP-ELI_LILLY_AND_COMPANY-JP201402001138

PATIENT
  Sex: 0

DRUGS (5)
  1. ZYPREXA [Suspect]
     Indication: SCHIZOPHRENIA
     Dosage: UNK
     Route: 048
     Dates: start: 201210
  2. QUAZEPAM [Concomitant]
     Dosage: 15 MG, BID
     Route: 048
  3. U PAN [Concomitant]
     Dosage: 1 MG, UNK
     Route: 048
  4. MEILAX [Concomitant]
     Dosage: 1 MG, UNK
     Route: 048
  5. GOODMIN [Concomitant]
     Dosage: 0.25 MG, BID
     Route: 048

REACTIONS (1)
  - Iron deficiency anaemia [Unknown]
